FAERS Safety Report 15713654 (Version 1)
Quarter: 2018Q4

REPORT INFORMATION
  Report Type: Spontaneous
  Country: IT (occurrence: IT)
  Receive Date: 20181212
  Receipt Date: 20181212
  Transmission Date: 20190205
  Serious: Yes (Other)
  Sender: FDA-Public Use
  Company Number: IT-009507513-1812ITA004794

PATIENT
  Age: 69 Year
  Sex: Male

DRUGS (7)
  1. SLOWMET [Concomitant]
     Active Substance: METFORMIN HYDROCHLORIDE
     Indication: DIABETES MELLITUS
     Dosage: 1 DOSAGE FORM, QD
  2. DUOPLAVIN [Concomitant]
     Active Substance: ASPIRIN\CLOPIDOGREL
     Indication: PROPHYLAXIS
     Dosage: 1 DOSAGE FORM, QD
  3. UROREC [Concomitant]
     Active Substance: SILODOSIN
     Indication: BENIGN PROSTATIC HYPERPLASIA
     Dosage: 1 DOSAGE FORM, QD
  4. ESKIM [Concomitant]
     Active Substance: OMEGA-3 FATTY ACIDS
     Indication: HYPERTRIGLYCERIDAEMIA
     Dosage: 1 DOSAGE FORM, QD
     Route: 048
  5. LUCEN (ESOMEPRAZOLE SODIUM) [Concomitant]
     Dosage: 1 DOSAGE FORM, QD
  6. INEGY 10 MG/10 MG COMPRESSE [Suspect]
     Active Substance: EZETIMIBE\SIMVASTATIN
     Indication: HYPERTENSION
     Dosage: 1 DOSAGE FORM, QD
     Route: 048
  7. BRINTELLIX [Concomitant]
     Active Substance: VORTIOXETINE HYDROBROMIDE
     Indication: DEPRESSION
     Dosage: 1 DOSAGE FORM, QD

REACTIONS (2)
  - Drug ineffective [Unknown]
  - Blood pressure increased [Unknown]

NARRATIVE: CASE EVENT DATE: 20181107
